FAERS Safety Report 16974012 (Version 1)
Quarter: 2019Q4

REPORT INFORMATION
  Report Type: Spontaneous
  Country: TR (occurrence: TR)
  Receive Date: 20191030
  Receipt Date: 20191030
  Transmission Date: 20200122
  Serious: Yes (Other)
  Sender: FDA-Public Use
  Company Number: TR-BRISTOL-MYERS SQUIBB COMPANY-BMS-2019-104051

PATIENT
  Age: 25 Year
  Sex: Male

DRUGS (1)
  1. OPDIVO [Suspect]
     Active Substance: NIVOLUMAB
     Indication: COLORECTAL CANCER STAGE IV
     Dosage: UNK
     Route: 065
     Dates: start: 20190628

REACTIONS (3)
  - Loss of consciousness [Unknown]
  - Aphasia [Unknown]
  - Burning sensation [Unknown]

NARRATIVE: CASE EVENT DATE: 20190628
